FAERS Safety Report 11588419 (Version 1)
Quarter: 2015Q4

REPORT INFORMATION
  Report Type: Spontaneous
  Country: US (occurrence: None)
  Receive Date: 20151001
  Receipt Date: 20151001
  Transmission Date: 20160304
  Serious: Yes (Disabling, Other)
  Sender: FDA-Public Use
  Company Number: None

PATIENT
  Age: 52 Year
  Sex: Female
  Weight: 86.18 kg

DRUGS (1)
  1. SAVELLA [Suspect]
     Active Substance: MILNACIPRAN HYDROCHLORIDE
     Indication: RADICULITIS BRACHIAL
     Dosage: PILLS
     Dates: start: 20150908

REACTIONS (12)
  - Dyspnoea [None]
  - Anxiety [None]
  - Retching [None]
  - Dizziness [None]
  - Abdominal discomfort [None]
  - Nervousness [None]
  - Malaise [None]
  - Nausea [None]
  - Rash [None]
  - Asthenia [None]
  - Swelling [None]
  - Pruritus [None]

NARRATIVE: CASE EVENT DATE: 20150928
